FAERS Safety Report 10194675 (Version 4)
Quarter: 2014Q3

REPORT INFORMATION
  Report Type: Spontaneous
  Country: JP (occurrence: JP)
  Receive Date: 20140526
  Receipt Date: 20140904
  Transmission Date: 20150326
  Serious: Yes (Death, Other)
  Sender: FDA-Public Use
  Company Number: JP-ROCHE-1407755

PATIENT
  Age: 78 Year
  Sex: Female
  Weight: 60.06 kg

DRUGS (15)
  1. XOLAIR [Suspect]
     Active Substance: OMALIZUMAB
     Indication: ASTHMA
     Route: 058
     Dates: start: 20140423
  2. ZOLPIDEM TARTRATE. [Concomitant]
     Active Substance: ZOLPIDEM TARTRATE
  3. BISOLVON [Concomitant]
     Active Substance: BROMHEXINE HYDROCHLORIDE
  4. SINGULAIR [Concomitant]
     Active Substance: MONTELUKAST SODIUM
  5. CALONAL [Concomitant]
     Active Substance: ACETAMINOPHEN
     Route: 065
  6. KETOPROFEN. [Concomitant]
     Active Substance: KETOPROFEN
     Route: 065
  7. THEO-DUR [Concomitant]
     Active Substance: THEOPHYLLINE
  8. TOUGHMAC E [Concomitant]
     Active Substance: AMYLASE\LIPASE\PROTEASE
     Route: 065
  9. ADOAIR [Concomitant]
     Active Substance: FLUTICASONE PROPIONATE\SALMETEROL XINAFOATE
  10. LANSOPRAZOLE. [Concomitant]
     Active Substance: LANSOPRAZOLE
  11. CALFINA [Concomitant]
  12. GLIMEPIRIDE. [Concomitant]
     Active Substance: GLIMEPIRIDE
     Route: 065
  13. PELEX [Concomitant]
     Active Substance: CETYLPYRIDINIUM CHLORIDE\CHLORPHENIRAMINE MALEATE\GLYCYRRHIZINATE DIPOTASSIUM
     Route: 065
  14. SULTANOL [Concomitant]
     Active Substance: ALBUTEROL SULFATE
  15. AMLODIPINE [Concomitant]
     Active Substance: AMLODIPINE BESYLATE

REACTIONS (6)
  - Ventricular fibrillation [Unknown]
  - Loss of consciousness [Unknown]
  - Death [Fatal]
  - Fall [Unknown]
  - Pulseless electrical activity [Unknown]
  - Cardiac arrest [Unknown]

NARRATIVE: CASE EVENT DATE: 20140425
